FAERS Safety Report 7528867-9 (Version None)
Quarter: 2011Q2

REPORT INFORMATION
  Report Type: 
  Country: None (occurrence: None)
  Receive Date: 20110607
  Receipt Date: 20101220
  Transmission Date: 20111010
  Serious: No
  Sender: FDA-Public Use
  Company Number: US-ASTRAZENECA-2011SE01039

PATIENT
  Age: 80 Year
  Sex: Male

DRUGS (5)
  1. GLIPIZIDE [Concomitant]
     Dosage: UNKNOWN
  2. ALLERGY MEDICATION [Concomitant]
     Dosage: UNKNOWN
  3. ANTIHYPERTENSIVES [Concomitant]
     Dosage: UNKNOWN
  4. CHOLESTEROL- AND TRIGLYCERIDE REDUCERS [Concomitant]
     Dosage: UNKNOWN
  5. PRILOSEC OTC [Suspect]
     Indication: GASTRIC ULCER
     Route: 048

REACTIONS (1)
  - BLOOD GLUCOSE INCREASED [None]
